FAERS Safety Report 17072511 (Version 1)
Quarter: 2019Q4

REPORT INFORMATION
  Report Type: Spontaneous
  Country: NO (occurrence: NO)
  Receive Date: 20191125
  Receipt Date: 20191125
  Transmission Date: 20200122
  Serious: Yes (Other)
  Sender: FDA-Public Use
  Company Number: NO-SHIRE-NO201937605

PATIENT

DRUGS (1)
  1. ADUVANZ [Suspect]
     Active Substance: LISDEXAMFETAMINE DIMESYLATE
     Indication: PRODUCT USED FOR UNKNOWN INDICATION
     Dosage: 60 MILLIGRAM, UNKNOWN
     Route: 065

REACTIONS (2)
  - Fatigue [Recovering/Resolving]
  - Poisoning [Unknown]
